FAERS Safety Report 12204895 (Version 2)
Quarter: 2016Q2

REPORT INFORMATION
  Report Type: Spontaneous
  Country: GB (occurrence: GB)
  Receive Date: 20160323
  Receipt Date: 20160428
  Transmission Date: 20160815
  Serious: Yes (Hospitalization, Other)
  Sender: FDA-Public Use
  Company Number: GB-WATSON-2016-06048

PATIENT
  Age: 32 Year
  Sex: Male

DRUGS (3)
  1. OXYMETHOLONE [Suspect]
     Active Substance: OXYMETHOLONE
     Indication: PRODUCT USED FOR UNKNOWN INDICATION
     Dosage: 4 CYCLES,AT REGULAR INTERVALS
     Route: 065
  2. TESTOSTERONE (UNKNOWN) [Suspect]
     Active Substance: TESTOSTERONE
     Indication: PRODUCT USED FOR UNKNOWN INDICATION
     Dosage: 4 CYCLES AT REGULAR INTERVALS
     Route: 065
  3. CHLORODEHYDROMETHYLTESTOSTERONE [Suspect]
     Active Substance: CHLORODEHYDROMETHYLTESTOSTERONE
     Indication: PRODUCT USED FOR UNKNOWN INDICATION
     Dosage: 4 CYCLES,AT REGULAR INTERVALS
     Route: 048

REACTIONS (3)
  - Cerebellar infarction [Unknown]
  - Polycythaemia [Recovered/Resolved]
  - Deafness neurosensory [Not Recovered/Not Resolved]
